FAERS Safety Report 11628070 (Version 2)
Quarter: 2015Q4

REPORT INFORMATION
  Report Type: Report from Study
  Country: GB (occurrence: GB)
  Receive Date: 20151014
  Receipt Date: 20151215
  Transmission Date: 20160304
  Serious: Yes (Other)
  Sender: FDA-Public Use
  Company Number: GB-BTG INTERNATIONAL LTD-BTG00385

PATIENT

DRUGS (2)
  1. DIGOXIN. [Suspect]
     Active Substance: DIGOXIN
     Indication: PRODUCT USED FOR UNKNOWN INDICATION
     Dosage: 125 ?G, UNK
  2. DIGIFAB [Suspect]
     Active Substance: OVINE DIGOXIN IMMUNE FAB
     Indication: TOXICITY TO VARIOUS AGENTS
     Dosage: 4 VIALS
     Dates: start: 20150925

REACTIONS (5)
  - Hyperkalaemia [None]
  - No adverse event [None]
  - Drug ineffective [None]
  - Toxicity to various agents [None]
  - Gastrointestinal disorder [None]

NARRATIVE: CASE EVENT DATE: 20150928
